FAERS Safety Report 18668920 (Version 1)
Quarter: 2020Q4

REPORT INFORMATION
  Report Type: Report from Study
  Country: None (occurrence: US)
  Receive Date: 20201228
  Receipt Date: 20201228
  Transmission Date: 20210114
  Serious: Yes (Other)
  Sender: FDA-Public Use
  Company Number: US-ABBVIE-20K-163-3703886-00

PATIENT
  Age: 62 Year
  Sex: Male

DRUGS (2)
  1. HUMIRA [Suspect]
     Active Substance: ADALIMUMAB
     Route: 058
     Dates: start: 202012
  2. HUMIRA [Suspect]
     Active Substance: ADALIMUMAB
     Indication: PSORIATIC ARTHROPATHY
     Route: 058
     Dates: start: 20191210, end: 2020

REACTIONS (8)
  - Psoriatic arthropathy [Unknown]
  - Eye irritation [Unknown]
  - Eye pruritus [Unknown]
  - Pain [Not Recovered/Not Resolved]
  - Night sweats [Unknown]
  - Visual impairment [Not Recovered/Not Resolved]
  - Benign neoplasm of prostate [Unknown]
  - COVID-19 [Unknown]

NARRATIVE: CASE EVENT DATE: 202010
